FAERS Safety Report 8817041 (Version 1)
Quarter: 2012Q4

REPORT INFORMATION
  Report Type: Spontaneous
  Country: US (occurrence: None)
  Receive Date: 20121003
  Receipt Date: 20121003
  Transmission Date: 20130627
  Serious: Yes (Other)
  Sender: FDA-Public Use
  Company Number: None

PATIENT
  Age: 28 Year
  Sex: Male
  Weight: 81.65 kg

DRUGS (2)
  1. GEODON [Suspect]
     Indication: BIPOLAR DISORDER
     Route: 048
     Dates: start: 20120912, end: 20120913
  2. GEODON [Suspect]
     Indication: ACUTE MANIA
     Route: 048
     Dates: start: 20120912, end: 20120913

REACTIONS (7)
  - Dyspnoea [None]
  - Hyperventilation [None]
  - Dysarthria [None]
  - Coordination abnormal [None]
  - Swollen tongue [None]
  - Gait disturbance [None]
  - Oromandibular dystonia [None]
